FAERS Safety Report 25529566 (Version 1)
Quarter: 2025Q3

REPORT INFORMATION
  Report Type: Spontaneous
  Country: US (occurrence: None)
  Receive Date: 20250708
  Receipt Date: 20250708
  Transmission Date: 20251020
  Serious: Yes (Hospitalization)
  Sender: FDA-CTU
  Company Number: None

PATIENT
  Age: 34 Year
  Sex: Female
  Weight: 68 kg

DRUGS (3)
  1. FLUOROURACIL [Suspect]
     Active Substance: FLUOROURACIL
     Dates: start: 20250514
  2. LEUCOVORIN CALCIUM [Suspect]
     Active Substance: LEUCOVORIN CALCIUM
     Dates: start: 20250514
  3. ELOXATIN [Suspect]
     Active Substance: OXALIPLATIN
     Dates: start: 20250514

REACTIONS (7)
  - Overdose [None]
  - Heart rate increased [None]
  - Urinary tract infection [None]
  - Acute kidney injury [None]
  - Troponin increased [None]
  - Refusal of treatment by patient [None]
  - Skin irritation [None]

NARRATIVE: CASE EVENT DATE: 20250516
